FAERS Safety Report 9677816 (Version 2)
Quarter: 2013Q4

REPORT INFORMATION
  Report Type: Spontaneous
  Country: US (occurrence: US)
  Receive Date: 20131108
  Receipt Date: 20131210
  Transmission Date: 20140711
  Serious: Yes (Hospitalization)
  Sender: FDA-Public Use
  Company Number: US-SA-2013SA111824

PATIENT
  Age: 60 Year
  Sex: Male

DRUGS (2)
  1. FABRAZYME [Suspect]
     Indication: FABRY^S DISEASE
     Route: 042
  2. FABRAZYME [Suspect]
     Indication: FABRY^S DISEASE
     Route: 042

REACTIONS (2)
  - Hernia [Recovered/Resolved]
  - Cholecystectomy [Recovered/Resolved]
